FAERS Safety Report 25791796 (Version 1)
Quarter: 2025Q3

REPORT INFORMATION
  Report Type: Report from Study
  Country: IN (occurrence: IN)
  Receive Date: 20250911
  Receipt Date: 20250911
  Transmission Date: 20251021
  Serious: Yes (Hospitalization)
  Sender: ELI LILLY AND COMPANY
  Company Number: IN-ELI_LILLY_AND_COMPANY-IN202509006376

PATIENT
  Age: 76 Year
  Sex: Female

DRUGS (8)
  1. ABEMACICLIB [Suspect]
     Active Substance: ABEMACICLIB
     Indication: Breast cancer
     Dosage: 150 MG, BID
     Route: 048
     Dates: start: 202507
  2. ABEMACICLIB [Suspect]
     Active Substance: ABEMACICLIB
     Dosage: 100 MG, BID
     Route: 048
     Dates: start: 202508
  3. CALVIT [CALCIUM;ERGOCALCIFEROL] [Concomitant]
     Indication: Mineral supplementation
     Route: 065
     Dates: start: 2022
  4. EXEMESTANE [Concomitant]
     Active Substance: EXEMESTANE
     Indication: Hormone therapy
     Route: 065
     Dates: start: 2022
  5. VILDAGLIPTIN [Concomitant]
     Active Substance: VILDAGLIPTIN
     Indication: Diabetes mellitus
     Route: 065
     Dates: start: 2022
  6. GLYCOMET [METFORMIN] [Concomitant]
     Indication: Diabetes mellitus
     Dosage: 500 MG, WEEKLY (1/W), 1 TAB MORNING AND 1 TAB EVENING
     Route: 065
     Dates: start: 2022
  7. TELMA [TELMISARTAN] [Concomitant]
     Indication: Blood pressure abnormal
     Route: 065
  8. BISOPROLOL FUMARATE [Concomitant]
     Active Substance: BISOPROLOL FUMARATE
     Indication: Pulmonary arterial hypertension
     Route: 065

REACTIONS (2)
  - Pyrexia [Recovering/Resolving]
  - White blood cell count decreased [Recovering/Resolving]

NARRATIVE: CASE EVENT DATE: 20250826
